FAERS Safety Report 9129854 (Version 1)
Quarter: 2013Q1

REPORT INFORMATION
  Report Type: Spontaneous
  Country: JP (occurrence: JP)
  Receive Date: 20130125
  Receipt Date: 20130125
  Transmission Date: 20140127
  Serious: Yes (Other)
  Sender: FDA-Public Use
  Company Number: JP-PFIZER INC-2013024031

PATIENT
  Age: 36 Year
  Sex: Female

DRUGS (4)
  1. CELECOX [Suspect]
     Indication: PSORIATIC ARTHROPATHY
     Dosage: UNK
     Route: 048
  2. CORTICOSTEROIDS [Concomitant]
     Indication: PSORIASIS
  3. CALCIPOTRIOL [Concomitant]
     Indication: PSORIASIS
     Dosage: UNK
  4. CLOBETASOL PROPIONATE [Concomitant]
     Indication: PUSTULAR PSORIASIS
     Dosage: UNK

REACTIONS (2)
  - Psoriatic arthropathy [Recovered/Resolved]
  - Drug ineffective for unapproved indication [Unknown]
